FAERS Safety Report 20222036 (Version 1)
Quarter: 2021Q4

REPORT INFORMATION
  Report Type: Spontaneous
  Country: US (occurrence: None)
  Receive Date: 20211222
  Receipt Date: 20211222
  Transmission Date: 20220303
  Serious: No
  Sender: FDA-Public Use
  Company Number: None

PATIENT
  Age: 55 Year
  Sex: Female
  Weight: 95.85 kg

DRUGS (26)
  1. TYMLOS [Suspect]
     Active Substance: ABALOPARATIDE
     Indication: Osteoporosis
     Dosage: OTHER QUANTITY : 1 INJECTION(S);?8 MONTH DURATION
     Route: 058
  2. ALBUTEROL [Concomitant]
     Active Substance: ALBUTEROL
  3. ATENOLOL [Concomitant]
     Active Substance: ATENOLOL
  4. DICYCLOMINE [Concomitant]
     Active Substance: DICYCLOMINE HYDROCHLORIDE
  5. CELECOXIB [Concomitant]
     Active Substance: CELECOXIB
  6. ESTRACE [Concomitant]
     Active Substance: ESTRADIOL
  7. LISINOPRIL [Concomitant]
     Active Substance: LISINOPRIL
  8. AMITRIPTYLINE [Concomitant]
     Active Substance: AMITRIPTYLINE
  9. TRAZODONE [Concomitant]
     Active Substance: TRAZODONE HYDROCHLORIDE
  10. ATORVASTATIN [Concomitant]
     Active Substance: ATORVASTATIN
  11. TIZANIDINE [Concomitant]
     Active Substance: TIZANIDINE
  12. PROTONIX [Concomitant]
     Active Substance: PANTOPRAZOLE SODIUM
  13. LORAZEPAM [Concomitant]
     Active Substance: LORAZEPAM
  14. ARMOUR THYROID [Concomitant]
     Active Substance: THYROID, PORCINE
  15. VIT B2 [Concomitant]
  16. MAGNESIUM CITRATE [Concomitant]
     Active Substance: MAGNESIUM CITRATE
  17. PHENERGAN [Concomitant]
     Active Substance: PROMETHAZINE HYDROCHLORIDE
  18. nurtec otc [Concomitant]
  19. EMGALITY [Concomitant]
     Active Substance: GALCANEZUMAB-GNLM
  20. TYLENOL EXTRA STRENGTH [Concomitant]
     Active Substance: ACETAMINOPHEN
  21. BENADRYL [Concomitant]
     Active Substance: DIPHENHYDRAMINE HYDROCHLORIDE
  22. LOW DOSE ASPIRIN [Concomitant]
     Active Substance: ASPIRIN
  23. VITAMIN B12 [Concomitant]
     Active Substance: CYANOCOBALAMIN
  24. fiber chews [Concomitant]
  25. MELATONIN [Concomitant]
     Active Substance: MELATONIN
  26. VITAMIN D3 [Concomitant]
     Active Substance: CHOLECALCIFEROL

REACTIONS (2)
  - Muscle spasms [None]
  - Hypoacusis [None]

NARRATIVE: CASE EVENT DATE: 20210303
